FAERS Safety Report 16235872 (Version 1)
Quarter: 2019Q2

REPORT INFORMATION
  Report Type: Spontaneous
  Country: US (occurrence: US)
  Receive Date: 20190424
  Receipt Date: 20190424
  Transmission Date: 20190711
  Serious: No
  Sender: FDA-Public Use
  Company Number: US-SENTYNL THERAPEUTICS, INC.  -2066192

PATIENT
  Age: 48 Year
  Sex: Female

DRUGS (7)
  1. SAVELLA [Concomitant]
     Active Substance: MILNACIPRAN HYDROCHLORIDE
  2. AMITIZA [Concomitant]
     Active Substance: LUBIPROSTONE
  3. NARCAN [Concomitant]
     Active Substance: NALOXONE HYDROCHLORIDE
  4. LEVORPHANOL TARTRATE. [Suspect]
     Active Substance: LEVORPHANOL TARTRATE
     Indication: INTERVERTEBRAL DISC DISORDER
     Route: 048
     Dates: start: 20181005
  5. LYRICA [Concomitant]
     Active Substance: PREGABALIN
  6. NAPROXEN. [Concomitant]
     Active Substance: NAPROXEN
  7. ZOLOFT [Concomitant]
     Active Substance: SERTRALINE HYDROCHLORIDE

REACTIONS (4)
  - Headache [Unknown]
  - Swelling face [Unknown]
  - Palpitations [Unknown]
  - Peripheral swelling [Unknown]
